FAERS Safety Report 8459735 (Version 2)
Quarter: 2012Q4

REPORT INFORMATION
  Report Type: 
  Country: US (occurrence: US)
  Receive Date: 20120314
  Receipt Date: 20121008
  Transmission Date: 20130627
  Serious: Yes (Hospitalization)
  Sender: FDA-Public Use
  Company Number: US-ASTRAZENECA-2011SE46841

PATIENT
  Age: 78 Year
  Sex: Female
  Weight: 68 kg

DRUGS (9)
  1. CRESTOR [Suspect]
     Indication: BLOOD CHOLESTEROL ABNORMAL
     Route: 048
     Dates: start: 2009
  2. TOPROL XL [Suspect]
     Indication: CARDIAC DISORDER
     Route: 048
     Dates: start: 2009
  3. IMDUR [Concomitant]
     Indication: CARDIAC DISORDER
     Route: 048
     Dates: start: 2009
  4. HYDRALAZINE [Concomitant]
     Indication: BLOOD PRESSURE ABNORMAL
     Route: 048
     Dates: start: 2009
  5. LASIX [Concomitant]
     Indication: CARDIAC DISORDER
     Route: 048
     Dates: start: 2009
  6. LEVOTHYROXINE [Concomitant]
     Indication: THYROID HORMONE REPLACEMENT THERAPY
     Route: 048
     Dates: start: 2010
  7. COUMADINE [Concomitant]
     Indication: ANTICOAGULANT THERAPY
     Dosage: 2.5mg 5mg once daily
     Route: 048
     Dates: start: 2009
  8. NORVASC [Concomitant]
     Indication: BLOOD PRESSURE ABNORMAL
     Route: 048
     Dates: start: 2009
  9. REQUIP [Concomitant]
     Indication: RESTLESS LEGS SYNDROME
     Route: 048
     Dates: start: 2010

REACTIONS (3)
  - Cardiac failure congestive [Unknown]
  - Dysphagia [Unknown]
  - Intentional drug misuse [Unknown]
